FAERS Safety Report 7459869-9 (Version None)
Quarter: 2011Q2

REPORT INFORMATION
  Report Type: 
  Country: None (occurrence: None)
  Receive Date: 20110504
  Receipt Date: 20110504
  Transmission Date: 20111010
  Serious: Yes (Life-Threatening)
  Sender: FDA-Public Use
  Company Number: None

PATIENT
  Age: 69 Year
  Sex: Male
  Weight: 85.2762 kg

DRUGS (1)
  1. CYMBALTA [Suspect]
     Indication: DEPRESSION
     Dosage: 30 MG -3/7 TO 3/21- X 1, AM ONLY PO; 30 MG -3/22 TO 4/14- X 2, AM + PM PO
     Route: 048

REACTIONS (2)
  - CHEST PAIN [None]
  - MIDDLE INSOMNIA [None]
